FAERS Safety Report 6051388-X (Version None)
Quarter: 2009Q1

REPORT INFORMATION
  Report Type: 
  Country: None (occurrence: None)
  Receive Date: 20090126
  Receipt Date: 20090115
  Transmission Date: 20090719
  Serious: Yes (Other)
  Sender: FDA-Public Use
  Company Number: US-AVENTIS-200815310US

PATIENT
  Sex: Female
  Weight: 77.11 kg

DRUGS (4)
  1. TAXOTERE [Suspect]
     Indication: BREAST CANCER FEMALE
     Dosage: DOSE: 140 MG OVER 1 HOUR
     Route: 042
     Dates: start: 20080721, end: 20081020
  2. CYCLOPHOSPHAMIDE [Suspect]
     Dosage: DOSE: 1128 MG EVERY 2 WEEKS
     Dates: start: 20080721, end: 20081020
  3. WELLBUTRIN XL [Concomitant]
     Dosage: DOSE: UNK
  4. ANTIEMETICS AND ANTINAUSEANTS [Concomitant]
     Dosage: DOSE: UNK
     Dates: start: 20080721, end: 20081020

REACTIONS (3)
  - EYE PAIN [None]
  - OPTIC NEURITIS [None]
  - VISION BLURRED [None]
